FAERS Safety Report 4469131-4 (Version None)
Quarter: 2004Q4

REPORT INFORMATION
  Report Type: 
  Country: None (occurrence: None)
  Receive Date: 20041005
  Receipt Date: 20041005
  Transmission Date: 20050328
  Serious: No
  Sender: FDA-Public Use
  Company Number: None

PATIENT
  Age: 58 Year
  Sex: Male
  Weight: 71.6683 kg

DRUGS (11)
  1. VIREAD [Suspect]
     Indication: BLOOD CREATININE INCREASED
     Dosage: 300 MG PO QD
     Route: 048
     Dates: start: 20011023, end: 20040728
  2. VIREAD [Suspect]
     Indication: PROTEINURIA
     Dosage: 300 MG PO QD
     Route: 048
     Dates: start: 20011023, end: 20040728
  3. KALETRA [Concomitant]
  4. EFV [Concomitant]
  5. ZIAGEN [Concomitant]
  6. DAPSONE [Concomitant]
  7. GLUCOPHAGE [Concomitant]
  8. KETAPROFEN [Concomitant]
  9. FOSAMAX [Concomitant]
  10. TESTOSTERONE [Concomitant]
  11. ACYCLOVIR [Concomitant]

REACTIONS (1)
  - FANCONI SYNDROME ACQUIRED [None]
